FAERS Safety Report 7455583-4 (Version None)
Quarter: 2011Q2

REPORT INFORMATION
  Report Type: 
  Country: None (occurrence: None)
  Receive Date: 20110503
  Receipt Date: 20110418
  Transmission Date: 20111010
  Serious: Yes (Death)
  Sender: FDA-Public Use
  Company Number: DE-ROCHE-773441

PATIENT
  Age: 52 Year
  Sex: Female
  Weight: 62 kg

DRUGS (2)
  1. PACLITAXEL [Concomitant]
     Dates: start: 20100816, end: 20101108
  2. BEVACIZUMAB [Suspect]
     Dosage: LAST INFUSION: 08 NOV 2010.
     Route: 042
     Dates: start: 20100816, end: 20101108

REACTIONS (2)
  - NO THERAPEUTIC RESPONSE [None]
  - NEOPLASM MALIGNANT [None]
